FAERS Safety Report 24703443 (Version 2)
Quarter: 2024Q4

REPORT INFORMATION
  Report Type: Report from Study
  Country: US (occurrence: US)
  Receive Date: 20241205
  Receipt Date: 20241211
  Transmission Date: 20250114
  Serious: Yes (Hospitalization, Disabling, Other)
  Sender: ABBVIE
  Company Number: US-ABBVIE-5926932

PATIENT
  Age: 85 Year
  Sex: Male
  Weight: 92 kg

DRUGS (1)
  1. LUPRON [Suspect]
     Active Substance: LEUPROLIDE ACETATE
     Indication: Product used for unknown indication
     Route: 065
     Dates: start: 20220725

REACTIONS (6)
  - Knee operation [Not Recovered/Not Resolved]
  - COVID-19 [Recovering/Resolving]
  - Dysstasia [Not Recovered/Not Resolved]
  - Fall [Recovered/Resolved]
  - Swelling [Recovered/Resolved]
  - COVID-19 [Recovered/Resolved]

NARRATIVE: CASE EVENT DATE: 20230101
